FAERS Safety Report 7065134-4 (Version None)
Quarter: 2010Q4

REPORT INFORMATION
  Report Type: 
  Country: None (occurrence: None)
  Receive Date: 20101027
  Receipt Date: 20101012
  Transmission Date: 20110411
  Serious: Yes (Death, Hospitalization, Other)
  Sender: FDA-Public Use
  Company Number: US-AMGEN-QUU443517

PATIENT

DRUGS (3)
  1. NPLATE [Suspect]
     Indication: IDIOPATHIC THROMBOCYTOPENIC PURPURA
     Dosage: UNK UNK, UNK
     Dates: start: 20100125, end: 20100319
  2. CORTICOSTEROID NOS [Concomitant]
  3. IMMU-G [Concomitant]
     Dosage: UNK UNK, UNK
     Route: 042

REACTIONS (12)
  - ACUTE RESPIRATORY FAILURE [None]
  - CIRRHOSIS ALCOHOLIC [None]
  - DEPRESSION [None]
  - HEPATIC ENCEPHALOPATHY [None]
  - MALNUTRITION [None]
  - METABOLIC ENCEPHALOPATHY [None]
  - OEDEMA PERIPHERAL [None]
  - ORGAN FAILURE [None]
  - PERITONITIS BACTERIAL [None]
  - RENAL FAILURE [None]
  - SEPSIS [None]
  - TOXIC ENCEPHALOPATHY [None]
